FAERS Safety Report 10545942 (Version 1)
Quarter: 2014Q4

REPORT INFORMATION
  Report Type: Spontaneous
  Country: US (occurrence: US)
  Receive Date: 20141027
  Receipt Date: 20141027
  Transmission Date: 20150529
  Serious: Yes (Hospitalization, Disabling)
  Sender: FDA-Public Use
  Company Number: US-RECKITT BENCKISER PHARMACEUTICAL, INC-RB-72660-2014

PATIENT
  Sex: Male

DRUGS (1)
  1. SUBOXONE [Suspect]
     Active Substance: BUPRENORPHINE HYDROCHLORIDE\NALOXONE HYDROCHLORIDE
     Indication: DRUG DEPENDENCE
     Dosage: 16 MG, DAILY
     Route: 060

REACTIONS (2)
  - Vomiting [Recovered/Resolved]
  - Disability [Not Recovered/Not Resolved]
